FAERS Safety Report 19503182 (Version 2)
Quarter: 2021Q3

REPORT INFORMATION
  Report Type: Spontaneous
  Country: FR (occurrence: FR)
  Receive Date: 20210707
  Receipt Date: 20210720
  Transmission Date: 20211014
  Serious: Yes (Death, Hospitalization, Other)
  Sender: FDA-Public Use
  Company Number: FR-AMGEN-FRANI2021102006

PATIENT
  Age: 55 Year
  Sex: Female

DRUGS (8)
  1. LUMAKRAS [Suspect]
     Active Substance: SOTORASIB
     Indication: LUNG ADENOCARCINOMA STAGE IV
     Dosage: UNK
     Route: 065
     Dates: start: 20210422, end: 20210423
  2. INNOHEP [Concomitant]
     Active Substance: TINZAPARIN SODIUM
  3. DUROGESIC [Concomitant]
     Active Substance: FENTANYL
  4. CORTANCYL [Concomitant]
     Active Substance: PREDNISONE
  5. RISEDRONATE [Concomitant]
     Active Substance: RISEDRONATE SODIUM
  6. DAFALGAN [Concomitant]
     Active Substance: ACETAMINOPHEN
  7. LAROXYL [Concomitant]
     Active Substance: AMITRIPTYLINE HYDROCHLORIDE
  8. SERETIDE [Concomitant]
     Active Substance: FLUTICASONE PROPIONATE\SALMETEROL XINAFOATE

REACTIONS (2)
  - Lung adenocarcinoma stage IV [Fatal]
  - Acute respiratory failure [Unknown]

NARRATIVE: CASE EVENT DATE: 20210422
